FAERS Safety Report 24304816 (Version 1)
Quarter: 2024Q3

REPORT INFORMATION
  Report Type: Spontaneous
  Country: US (occurrence: None)
  Receive Date: 20240910
  Receipt Date: 20240910
  Transmission Date: 20241016
  Serious: No
  Sender: UNICHEM
  Company Number: US-ARIS GLOBAL-UCM202401-000042

PATIENT
  Age: 83 Year

DRUGS (2)
  1. TRAMADOL HCL [Suspect]
     Active Substance: TRAMADOL HYDROCHLORIDE
     Indication: Back pain
  2. ROPINIROLE [Concomitant]
     Active Substance: ROPINIROLE
     Indication: Restless legs syndrome

REACTIONS (3)
  - Peripheral swelling [Unknown]
  - Feeling abnormal [Unknown]
  - Drug ineffective [Unknown]
